FAERS Safety Report 8271384-1 (Version None)
Quarter: 2012Q2

REPORT INFORMATION
  Report Type: 
  Country: None (occurrence: None)
  Receive Date: 20120410
  Receipt Date: 20120229
  Transmission Date: 20120825
  Serious: No
  Sender: FDA-Public Use
  Company Number: US-NOVEN-12US004189

PATIENT
  Sex: Female

DRUGS (3)
  1. HYDROCODONE BITARTRATE [Concomitant]
     Indication: BREAKTHROUGH PAIN
     Dosage: 10 MG, PRN
     Route: 048
  2. FENTANYL CITRATE [Suspect]
     Indication: BACK PAIN
     Dosage: 100 UG/HR, Q 72 HOURS
     Route: 062
     Dates: start: 20120201
  3. FENTANYL CITRATE [Suspect]
     Dosage: 50 UG/HR, Q 72 HOURS
     Route: 064
     Dates: start: 20120201

REACTIONS (2)
  - INADEQUATE ANALGESIA [None]
  - PRODUCT QUALITY ISSUE [None]
